FAERS Safety Report 16887569 (Version 2)
Quarter: 2020Q1

REPORT INFORMATION
  Report Type: Spontaneous
  Country: FR (occurrence: FR)
  Receive Date: 20191005
  Receipt Date: 20200204
  Transmission Date: 20200409
  Serious: Yes (Other)
  Sender: FDA-Public Use
  Company Number: FR-ROCHE-2429370

PATIENT
  Sex: Female

DRUGS (2)
  1. LUCENTIS [Suspect]
     Active Substance: RANIBIZUMAB
     Dosage: UNK
     Route: 031
     Dates: start: 201907
  2. LUCENTIS [Suspect]
     Active Substance: RANIBIZUMAB
     Indication: PRODUCT USED FOR UNKNOWN INDICATION
     Dosage: UNK
     Route: 031

REACTIONS (2)
  - Syncope [Unknown]
  - Loss of consciousness [Unknown]

NARRATIVE: CASE EVENT DATE: 201908
